FAERS Safety Report 19264249 (Version 1)
Quarter: 2021Q2

REPORT INFORMATION
  Report Type: Spontaneous
  Country: US (occurrence: US)
  Receive Date: 20210516
  Receipt Date: 20210516
  Transmission Date: 20210717
  Serious: Yes (Disabling)
  Sender: FDA-Public Use
  Company Number: None

PATIENT
  Age: 37 Year
  Sex: Female
  Weight: 74.25 kg

DRUGS (1)
  1. NP THYROID [Suspect]
     Active Substance: LEVOTHYROXINE\LIOTHYRONINE
     Indication: HYPOTHYROIDISM
     Dosage: ?          QUANTITY:90 TABLET(S);?
     Route: 048
     Dates: start: 20210326, end: 20210515

REACTIONS (7)
  - Drug ineffective [None]
  - Recalled product [None]
  - Fatigue [None]
  - Swelling face [None]
  - Goitre [None]
  - Weight increased [None]
  - Suspected product quality issue [None]

NARRATIVE: CASE EVENT DATE: 20210326
